FAERS Safety Report 9026337 (Version 2)
Quarter: 2014Q3

REPORT INFORMATION
  Report Type: Report from Study
  Country: MX (occurrence: MX)
  Receive Date: 20130123
  Receipt Date: 20140805
  Transmission Date: 20150326
  Serious: Yes (Other)
  Sender: FDA-Public Use
  Company Number: PHHY2013MX005806

PATIENT
  Age: 85 Year
  Sex: Female

DRUGS (4)
  1. CO-DIOVAN [Suspect]
     Active Substance: HYDROCHLOROTHIAZIDE\VALSARTAN
     Indication: HYPERTENSION
     Dosage: 1 DF, (160/12,5 MG), DAILY
     Route: 048
     Dates: start: 201301, end: 201301
  2. CO-DIOVAN [Suspect]
     Active Substance: HYDROCHLOROTHIAZIDE\VALSARTAN
     Dosage: UNK UKN(160/12.5MG), UNK
  3. ASPIRINE PROTECT [Concomitant]
     Active Substance: ASPIRIN
     Indication: CARDIOVASCULAR DISORDER
     Dosage: 1 DF, DAILY
  4. CAFIASPIRINA [Concomitant]
     Indication: HEADACHE
     Dosage: 1 DF, IN CASE OF PAIN
     Dates: start: 2008

REACTIONS (7)
  - Tinnitus [Recovered/Resolved]
  - Malaise [Recovered/Resolved]
  - Dyspepsia [Recovered/Resolved]
  - Dizziness [Recovered/Resolved]
  - Carotid artery occlusion [Recovered/Resolved]
  - Dysphagia [Unknown]
  - Headache [Recovered/Resolved]

NARRATIVE: CASE EVENT DATE: 201301
